FAERS Safety Report 4790809-7 (Version None)
Quarter: 2005Q3

REPORT INFORMATION
  Report Type: 
  Country: None (occurrence: None)
  Receive Date: 20050914
  Receipt Date: 20041102
  Transmission Date: 20060218
  Serious: Yes (Death, Hospitalization)
  Sender: FDA-Public Use
  Company Number: 062-20785-04110115

PATIENT
  Age: 73 Year
  Sex: Male

DRUGS (2)
  1. THALIDOMIDE - PHARMION  (THALIDOMIDE) (50 MILLIGRAM, CAPSULES) [Suspect]
     Indication: MULTIPLE MYELOMA
     Dosage: DAILY DOSE STEADILY INCREASED, THE LAST DOSE WAS 300MG, ORAL
     Route: 048
     Dates: start: 20040224, end: 20040701
  2. VELCADE [Concomitant]

REACTIONS (16)
  - CARDIAC ENZYMES INCREASED [None]
  - CHEST PAIN [None]
  - COAGULATION TIME ABNORMAL [None]
  - CORONARY ARTERY DISEASE [None]
  - COUGH [None]
  - DEATH [None]
  - DISEASE PROGRESSION [None]
  - DYSPNOEA [None]
  - FALL [None]
  - GASTROINTESTINAL HAEMORRHAGE [None]
  - MITRAL VALVE INCOMPETENCE [None]
  - PNEUMONIA [None]
  - PULMONARY CONGESTION [None]
  - RENAL FAILURE [None]
  - SUBDURAL HAEMATOMA [None]
  - THROMBOCYTOPENIA [None]
